FAERS Safety Report 8019840-5 (Version None)
Quarter: 2012Q1

REPORT INFORMATION
  Report Type: 
  Country: None (occurrence: None)
  Receive Date: 20120103
  Receipt Date: 20111221
  Transmission Date: 20120608
  Serious: No
  Sender: FDA-Public Use
  Company Number: US-BAYER-2011-123378

PATIENT

DRUGS (1)
  1. MAGNEVIST [Suspect]
     Indication: ARTHROGRAM

REACTIONS (3)
  - URTICARIA [None]
  - ERYTHEMA [None]
  - SWELLING [None]
